FAERS Safety Report 7435110-8 (Version None)
Quarter: 2011Q2

REPORT INFORMATION
  Report Type: 
  Country: None (occurrence: None)
  Receive Date: 20110425
  Receipt Date: 20110411
  Transmission Date: 20111010
  Serious: Yes (Other)
  Sender: FDA-Public Use
  Company Number: PHHY2011DE19741

PATIENT
  Sex: Female
  Weight: 79 kg

DRUGS (5)
  1. ZOMETA [Suspect]
     Dosage: 4 MG, EVERY 3-4 WEEKS
     Route: 042
     Dates: start: 20071129
  2. RAMIPRIL [Concomitant]
     Indication: HYPERTENSION
     Dosage: 25 MG, UNK
  3. BONDRONAT [Suspect]
     Dosage: 6 MG, EVERY 28 DAYS
     Route: 042
     Dates: start: 20071128, end: 20101202
  4. FALITHROM ^FAHLBERG^ [Concomitant]
     Indication: THROMBOSIS
     Dosage: UNK
  5. METOHEXAL [Concomitant]
     Indication: HYPERTENSION
     Dosage: UNK

REACTIONS (1)
  - OSTEONECROSIS OF JAW [None]
